FAERS Safety Report 25412997 (Version 1)
Quarter: 2025Q2

REPORT INFORMATION
  Report Type: Spontaneous
  Country: US (occurrence: None)
  Receive Date: 20250607
  Receipt Date: 20250607
  Transmission Date: 20250716
  Serious: Yes (Hospitalization)
  Sender: FDA-CTU
  Company Number: None

PATIENT
  Age: 68 Year
  Sex: Female
  Weight: 95.7 kg

DRUGS (7)
  1. CYCLOPHOSPHAMIDE [Suspect]
     Active Substance: CYCLOPHOSPHAMIDE
     Dates: end: 20250428
  2. CYTARABINE [Suspect]
     Active Substance: CYTARABINE
     Dates: end: 20250521
  3. DEXAMETHASONE [Suspect]
     Active Substance: DEXAMETHASONE
     Dates: end: 20250508
  4. DOXORUBICIN HYDROCHLORIDE [Suspect]
     Active Substance: DOXORUBICIN HYDROCHLORIDE
     Dates: end: 20250428
  5. METHOTREXATE [Suspect]
     Active Substance: METHOTREXATE
     Dates: end: 20250520
  6. PONATINIB [Suspect]
     Active Substance: PONATINIB
     Dates: end: 20250529
  7. VINCRISTINE SULFATE [Suspect]
     Active Substance: VINCRISTINE SULFATE
     Dates: end: 20250506

REACTIONS (12)
  - Headache [None]
  - Swelling face [None]
  - Gingival pain [None]
  - Platelet count decreased [None]
  - Febrile neutropenia [None]
  - Dental caries [None]
  - Cellulitis [None]
  - Skin infection [None]
  - Infection in an immunocompromised host [None]
  - Platelet transfusion [None]
  - Red blood cell transfusion [None]
  - Tachycardia [None]

NARRATIVE: CASE EVENT DATE: 20240530
